FAERS Safety Report 8996020 (Version 1)
Quarter: 2013Q1

REPORT INFORMATION
  Report Type: Spontaneous
  Country: US (occurrence: US)
  Receive Date: 20130103
  Receipt Date: 20130103
  Transmission Date: 20140127
  Serious: No
  Sender: FDA-Public Use
  Company Number: US-ABBOTT-12P-163-0943144-00

PATIENT
  Sex: Female

DRUGS (2)
  1. SYNTHROID 88 MCG [Suspect]
     Indication: BASEDOW^S DISEASE
  2. SYNTHROID 88 MCG [Suspect]
     Indication: RADIOTHERAPY
     Dates: start: 201205

REACTIONS (1)
  - Alopecia [Not Recovered/Not Resolved]
